FAERS Safety Report 10309860 (Version 1)
Quarter: 2014Q3

REPORT INFORMATION
  Report Type: Report from Study
  Country: CA (occurrence: CA)
  Receive Date: 20140717
  Receipt Date: 20140717
  Transmission Date: 20150326
  Serious: Yes (Other)
  Sender: FDA-Public Use
  Company Number: CA-BRISTOL-MYERS SQUIBB COMPANY-21213905

PATIENT
  Sex: Female

DRUGS (11)
  1. EXTERNAL-PREDNISONE [Concomitant]
  2. SYNTHROID [Concomitant]
     Active Substance: LEVOTHYROXINE SODIUM
  3. BACLOFEN. [Concomitant]
     Active Substance: BACLOFEN
  4. ARTOTEC [Concomitant]
     Active Substance: DICLOFENAC SODIUM\MISOPROSTOL
  5. SULFASALAZINE. [Concomitant]
     Active Substance: SULFASALAZINE
  6. MULTIVITAMINS [Concomitant]
     Active Substance: VITAMINS
  7. HYDROMORPHONE [Concomitant]
     Active Substance: HYDROMORPHONE
  8. LEFLUNOMIDE. [Concomitant]
     Active Substance: LEFLUNOMIDE
  9. LYRICA [Concomitant]
     Active Substance: PREGABALIN
  10. ABATACEPT [Suspect]
     Active Substance: ABATACEPT
     Indication: RHEUMATOID ARTHRITIS
     Dosage: LAST DOSE ON 09JUL14
     Route: 042
     Dates: start: 20130404
  11. CYMBALTA [Concomitant]
     Active Substance: DULOXETINE HYDROCHLORIDE

REACTIONS (1)
  - Arthropathy [Recovering/Resolving]
